FAERS Safety Report 8275160-5 (Version None)
Quarter: 2012Q2

REPORT INFORMATION
  Report Type: 
  Country: None (occurrence: None)
  Receive Date: 20120411
  Receipt Date: 20120404
  Transmission Date: 20120825
  Serious: Yes (Other)
  Sender: FDA-Public Use
  Company Number: PHHY2012DE024426

PATIENT
  Age: 32 Year
  Sex: Male

DRUGS (2)
  1. INTERFERON ALFA-2A [Suspect]
     Indication: HEPATITIS C
  2. RIBAVIRIN [Suspect]
     Indication: HEPATITIS C

REACTIONS (9)
  - RETINAL VEIN OCCLUSION [None]
  - LEUKOPENIA [None]
  - RETINAL OEDEMA [None]
  - RETINAL EXUDATES [None]
  - CYSTOID MACULAR OEDEMA [None]
  - VISUAL ACUITY REDUCED [None]
  - RETINAL CYST [None]
  - ANAEMIA [None]
  - RETINAL HAEMORRHAGE [None]
